FAERS Safety Report 8635049 (Version 2)
Quarter: 2013Q1

REPORT INFORMATION
  Report Type: Spontaneous
  Country: AU (occurrence: AU)
  Receive Date: 20120626
  Receipt Date: 20130308
  Transmission Date: 20140127
  Serious: Yes (Life-Threatening)
  Sender: FDA-Public Use
  Company Number: AU-BAYER-2012-062208

PATIENT
  Age: 36 Year
  Sex: Female

DRUGS (1)
  1. ULTRAVIST [Suspect]
     Indication: COMPUTERISED TOMOGRAM ABDOMEN
     Dosage: 60 ML, ONCE
     Route: 042
     Dates: start: 20120622, end: 20120622

REACTIONS (8)
  - Urticaria [Recovered/Resolved]
  - Sneezing [Recovered/Resolved]
  - Pruritus [Recovered/Resolved]
  - Throat tightness [Recovered/Resolved]
  - Dyspnoea [Recovered/Resolved]
  - Erythema [Recovered/Resolved]
  - Headache [Recovered/Resolved]
  - Ear discomfort [Recovered/Resolved]
